FAERS Safety Report 7374386-2 (Version None)
Quarter: 2011Q1

REPORT INFORMATION
  Report Type: 
  Country: None (occurrence: None)
  Receive Date: 20110325
  Receipt Date: 20110321
  Transmission Date: 20110831
  Serious: Yes (Other)
  Sender: FDA-Public Use
  Company Number: US-SANOFI-AVENTIS-2011SA017214

PATIENT
  Age: 68 Year
  Sex: Female

DRUGS (4)
  1. METHADONE [Concomitant]
     Indication: BACK PAIN
  2. ALLEGRA [Suspect]
     Route: 048
     Dates: start: 20110317, end: 20110320
  3. OXYCODONE [Concomitant]
     Dosage: TAKES IF NEEDED
  4. ZANAFLEX [Concomitant]
     Indication: BACK PAIN

REACTIONS (9)
  - BLOOD PRESSURE DECREASED [None]
  - HYPERTENSION [None]
  - DIZZINESS [None]
  - BACK PAIN [None]
  - PAIN IN EXTREMITY [None]
  - NAUSEA [None]
  - CHEST DISCOMFORT [None]
  - DYSPEPSIA [None]
  - NECK PAIN [None]
